FAERS Safety Report 5010112-X (Version None)
Quarter: 2006Q2

REPORT INFORMATION
  Report Type: 
  Country: None (occurrence: None)
  Receive Date: 20060523
  Receipt Date: 20060516
  Transmission Date: 20061013
  Serious: Yes (Life-Threatening, Hospitalization, Disabling)
  Sender: FDA-Public Use
  Company Number: E2020-00003-SPO-AU

PATIENT
  Age: 85 Year
  Sex: Male
  Weight: 80 kg

DRUGS (5)
  1. ARICEPT [Suspect]
     Indication: DEMENTIA ALZHEIMER'S TYPE
     Dosage: 5 MG, 1 IN 1 D, ORAL
     Route: 048
     Dates: start: 20060412, end: 20060414
  2. NORVASC [Concomitant]
  3. TRANDALOPRIL                             (UNSPECIFIED) [Concomitant]
  4. ASPIRIN [Concomitant]
  5. CLAMOXY                  (AMOXYCILLIN TRIHYDRATE, POTASSIUM CLAVULANAT [Concomitant]

REACTIONS (5)
  - HAEMORRHAGE [None]
  - IMMUNE SYSTEM DISORDER [None]
  - LOWER RESPIRATORY TRACT INFECTION [None]
  - PLATELET COUNT DECREASED [None]
  - THROMBOCYTOPENIC PURPURA [None]
